FAERS Safety Report 19426330 (Version 1)
Quarter: 2021Q2

REPORT INFORMATION
  Report Type: Spontaneous
  Country: JP (occurrence: JP)
  Receive Date: 20210617
  Receipt Date: 20210617
  Transmission Date: 20210717
  Serious: Yes (Other)
  Sender: FDA-Public Use
  Company Number: JP-AMGEN-JPNSP2021091068

PATIENT
  Sex: Female

DRUGS (2)
  1. TUMOR NECROSIS FACTOR?ALPHA [Concomitant]
     Active Substance: TUMOR NECROSIS FACTOR .ALPHA. HUMAN (SOLUBLE FORM)
     Indication: RHEUMATOID ARTHRITIS
     Dosage: UNK
  2. EVENITY [Suspect]
     Active Substance: ROMOSOZUMAB-AQQG
     Indication: OSTEOPOROSIS
     Dosage: 210 MILLIGRAM
     Route: 058

REACTIONS (1)
  - Rheumatoid arthritis [Recovered/Resolved]
